FAERS Safety Report 7542112-X (Version None)
Quarter: 2011Q2

REPORT INFORMATION
  Report Type: 
  Country: None (occurrence: None)
  Receive Date: 20110613
  Receipt Date: 20110608
  Transmission Date: 20111010
  Serious: Yes (Life-Threatening)
  Sender: FDA-Public Use
  Company Number: US-ASTRAZENECA-2011SE35060

PATIENT
  Age: 25524 Day
  Sex: Male

DRUGS (8)
  1. GUAIFENESIN [Concomitant]
     Indication: COUGH
     Route: 048
  2. GUAIFENESIN [Concomitant]
     Dosage: AS NEEDED
     Route: 048
  3. TERAZOSIN HCL [Concomitant]
     Indication: BENIGN PROSTATIC HYPERPLASIA
     Route: 048
  4. SERTRALINE HYDROCHLORIDE [Concomitant]
     Indication: DEPRESSION
     Route: 048
  5. ISOSORBIDE MONONITRATE [Concomitant]
     Indication: CHEST PAIN
     Route: 048
  6. LISINOPRIL [Concomitant]
     Indication: HYPERTENSION
     Route: 048
  7. POTASSIUM CITRATE [Concomitant]
     Indication: HYPOKALAEMIA
     Route: 048
  8. VANDETANIB [Suspect]
     Indication: THYROID CANCER
     Route: 048
     Dates: start: 20110504

REACTIONS (1)
  - CHEST PAIN [None]
